FAERS Safety Report 16174177 (Version 3)
Quarter: 2020Q2

REPORT INFORMATION
  Report Type: Spontaneous
  Country: CA (occurrence: CA)
  Receive Date: 20190409
  Receipt Date: 20200521
  Transmission Date: 20200713
  Serious: Yes (Hospitalization, Other)
  Sender: FDA-Public Use
  Company Number: CA-PFIZER INC-2019151147

PATIENT
  Age: 63 Year
  Sex: Female

DRUGS (28)
  1. OMALIZUMAB. [Suspect]
     Active Substance: OMALIZUMAB
     Dosage: UNK
     Route: 058
  2. OMALIZUMAB. [Suspect]
     Active Substance: OMALIZUMAB
     Dosage: UNK
     Route: 058
  3. OMALIZUMAB. [Suspect]
     Active Substance: OMALIZUMAB
     Dosage: 300 MG
     Route: 058
  4. PREDNISONE. [Concomitant]
     Active Substance: PREDNISONE
     Dosage: UNK, 1X/DAY
     Route: 048
     Dates: start: 20160525
  5. ATORVASTATIN CALCIUM. [Suspect]
     Active Substance: ATORVASTATIN CALCIUM
     Dosage: 1 DF, DAILY
     Route: 065
  6. OMALIZUMAB. [Suspect]
     Active Substance: OMALIZUMAB
     Indication: CHRONIC SPONTANEOUS URTICARIA
     Dosage: 300 MG
     Route: 058
  7. AVENA SATIVA/PETROLATUM [Concomitant]
     Dosage: UNK
     Dates: start: 20180317
  8. HYDROXYZINE EMBONATE [Concomitant]
     Active Substance: HYDROXYZINE PAMOATE
     Dosage: UNK, 1X/DAY
     Route: 065
     Dates: start: 20180423
  9. SPIRIVA [Concomitant]
     Active Substance: TIOTROPIUM BROMIDE MONOHYDRATE
     Dosage: UNK, 1X/DAY
     Route: 055
     Dates: start: 20160621
  10. DOXEPIN [Concomitant]
     Active Substance: DOXEPIN
     Dosage: UNK, 1X/DAY
     Route: 065
     Dates: start: 20151110
  11. OMALIZUMAB. [Suspect]
     Active Substance: OMALIZUMAB
     Dosage: 300 MG
     Route: 058
  12. OMALIZUMAB. [Suspect]
     Active Substance: OMALIZUMAB
     Dosage: UNK
     Route: 058
  13. REACTINE [Concomitant]
     Dosage: UNK, 2X/DAY
     Route: 048
     Dates: start: 20160428
  14. DESOXIMETASONE. [Suspect]
     Active Substance: DESOXIMETASONE
     Indication: GOUT
     Dosage: 4 DF
     Route: 065
  15. OMALIZUMAB. [Suspect]
     Active Substance: OMALIZUMAB
     Dosage: 300 MG
     Route: 058
  16. OMALIZUMAB. [Suspect]
     Active Substance: OMALIZUMAB
     Dosage: UNK
     Route: 058
  17. TERBUTALINE SULFATE. [Concomitant]
     Active Substance: TERBUTALINE SULFATE
     Dosage: UNK, 4X/DAY
     Route: 055
     Dates: start: 20160317
  18. OMALIZUMAB. [Suspect]
     Active Substance: OMALIZUMAB
     Dosage: UNK
     Route: 058
  19. APO-DOXEPIN [Concomitant]
     Active Substance: DOXEPIN
     Dosage: UNK, 1X/DAY
     Route: 048
  20. OMALIZUMAB. [Suspect]
     Active Substance: OMALIZUMAB
     Dosage: UNK
     Route: 058
  21. OMALIZUMAB. [Suspect]
     Active Substance: OMALIZUMAB
     Dosage: UNK
     Route: 058
  22. OMALIZUMAB. [Suspect]
     Active Substance: OMALIZUMAB
     Dosage: UNK
     Route: 058
  23. ATORVASTATIN CALCIUM. [Concomitant]
     Active Substance: ATORVASTATIN CALCIUM
     Dosage: 1 DF, 1X/DAY
     Route: 065
     Dates: start: 20160706
  24. PANTOPRAZOLE [Concomitant]
     Active Substance: PANTOPRAZOLE
     Dosage: 1 DF, 1X/DAY
     Route: 065
     Dates: start: 20160621
  25. AERIUS (DESLORATADINE) [Concomitant]
     Active Substance: DESLORATADINE
     Dosage: UNK, 1X/DAY
     Route: 048
     Dates: start: 20151110
  26. SYNTHROID [Concomitant]
     Active Substance: LEVOTHYROXINE SODIUM
     Dosage: UNK
  27. OMALIZUMAB. [Suspect]
     Active Substance: OMALIZUMAB
     Dosage: UNK
     Route: 058
  28. BETADERM [Concomitant]
     Active Substance: BETAMETHASONE VALERATE
     Dosage: UNK, 2X/DAY
     Dates: start: 20160713

REACTIONS (23)
  - Blood pressure increased [Recovering/Resolving]
  - Pneumonia [Not Recovered/Not Resolved]
  - Erythema [Not Recovered/Not Resolved]
  - Asthenia [Not Recovered/Not Resolved]
  - Hypophagia [Not Recovered/Not Resolved]
  - Pruritus [Recovering/Resolving]
  - Cough [Not Recovered/Not Resolved]
  - Pain in extremity [Recovering/Resolving]
  - Skin plaque [Recovering/Resolving]
  - Vomiting [Recovered/Resolved]
  - Gout [Recovering/Resolving]
  - Malaise [Recovered/Resolved]
  - Dizziness [Not Recovered/Not Resolved]
  - Gastrooesophageal reflux disease [Not Recovered/Not Resolved]
  - Nausea [Not Recovered/Not Resolved]
  - Urticaria [Recovered/Resolved]
  - Weight decreased [Not Recovered/Not Resolved]
  - Fear of injection [Unknown]
  - Herpes zoster [Not Recovered/Not Resolved]
  - Respiratory rate increased [Not Recovered/Not Resolved]
  - Therapeutic response decreased [Unknown]
  - Vertigo [Unknown]
  - Insomnia [Unknown]

NARRATIVE: CASE EVENT DATE: 2017
